FAERS Safety Report 18331952 (Version 2)
Quarter: 2020Q4

REPORT INFORMATION
  Report Type: Report from Study
  Country: US (occurrence: US)
  Receive Date: 20200930
  Receipt Date: 20201009
  Transmission Date: 20210113
  Serious: Yes (Hospitalization, Other)
  Sender: FDA-Public Use
  Company Number: US-REGENERON PHARMACEUTICALS, INC.-2020-76825

PATIENT

DRUGS (8)
  1. BENZOYL PEROXIDE. [Concomitant]
     Active Substance: BENZOYL PEROXIDE
     Indication: DERMATITIS ACNEIFORM
     Dosage: 1 UNK, BID
     Route: 061
     Dates: start: 20200818
  2. DIPHENHYDRAMINE. [Concomitant]
     Active Substance: DIPHENHYDRAMINE
     Indication: HYPERSENSITIVITY
     Dosage: 50 MG, AS NECESSARY
     Route: 042
     Dates: start: 20200826, end: 20200901
  3. BENZOYL PEROXIDE. [Concomitant]
     Active Substance: BENZOYL PEROXIDE
     Indication: ACNE
  4. ONDANSETRON [Concomitant]
     Active Substance: ONDANSETRON
     Indication: NAUSEA
     Dosage: 4 MG, Q8H
     Route: 048
     Dates: start: 20200818
  5. RADIOTHERAPY [Concomitant]
     Active Substance: RADIATION THERAPY
     Indication: MALIGNANT GLIOMA
     Dosage: UNK
  6. ACETAMINOPHEN. [Concomitant]
     Active Substance: ACETAMINOPHEN
     Indication: HEADACHE
     Dosage: 1000 MG, Q6H
     Route: 048
     Dates: start: 20200828
  7. CEMIPLIMAB [Suspect]
     Active Substance: CEMIPLIMAB
     Indication: MALIGNANT GLIOMA
     Dosage: 3 MG/KG, Q2W
     Route: 042
     Dates: start: 20200826
  8. DIPHENHYDRAMINE. [Concomitant]
     Active Substance: DIPHENHYDRAMINE
     Dosage: 50 MG, AS NECESSARY
     Route: 042
     Dates: start: 20200909, end: 20200915

REACTIONS (3)
  - Seizure [Recovered/Resolved]
  - Nervous system disorder [Recovered/Resolved]
  - Apnoea [Recovered/Resolved]

NARRATIVE: CASE EVENT DATE: 20200910
